FAERS Safety Report 16918470 (Version 1)
Quarter: 2019Q4

REPORT INFORMATION
  Report Type: Spontaneous
  Country: FR (occurrence: FR)
  Receive Date: 20191015
  Receipt Date: 20191015
  Transmission Date: 20200122
  Serious: Yes (Hospitalization, Other)
  Sender: FDA-Public Use
  Company Number: FR-PFIZER INC-2019435739

PATIENT
  Age: 29 Year
  Sex: Male
  Weight: 70 kg

DRUGS (8)
  1. METHOTREXATE BIODIM [Suspect]
     Active Substance: METHOTREXATE
     Indication: BURKITT^S LYMPHOMA
     Dosage: 30 MG, 1X/DAY
     Route: 024
     Dates: start: 20180905, end: 20180909
  2. DOXORUBICINE ACCORD [Suspect]
     Active Substance: DOXORUBICIN
     Indication: BURKITT^S LYMPHOMA
     Dosage: 115 MG, 1X/DAY
     Route: 042
     Dates: start: 20180905, end: 20180905
  3. MABTHERA [Suspect]
     Active Substance: RITUXIMAB
     Indication: BURKITT^S LYMPHOMA
     Dosage: 1420 MG, CYCLIC
     Route: 042
     Dates: start: 20180903, end: 20180909
  4. VINCRISTINE HOSPIRA [Suspect]
     Active Substance: VINCRISTINE
     Indication: BURKITT^S LYMPHOMA
     Dosage: 2 MG, 1X/DAY
     Route: 042
     Dates: start: 20180904, end: 20180904
  5. METHOTREXATE MYLAN [Suspect]
     Active Substance: METHOTREXATE SODIUM
     Indication: BURKITT^S LYMPHOMA
     Dosage: 5600 MG, 1X/DAY
     Route: 042
     Dates: start: 20180904, end: 20180904
  6. HYDROCORTISONE. [Suspect]
     Active Substance: HYDROCORTISONE
     Indication: BURKITT^S LYMPHOMA
     Dosage: 40 MG, 1X/DAY
     Route: 024
     Dates: start: 20180905, end: 20180909
  7. ENDOXANA [Suspect]
     Active Substance: CYCLOPHOSPHAMIDE
     Indication: BURKITT^S LYMPHOMA
     Dosage: 950 MG, 1X/DAY
     Route: 042
     Dates: start: 20180905, end: 20180907
  8. CYTARABINE. [Suspect]
     Active Substance: CYTARABINE
     Indication: BURKITT^S LYMPHOMA
     Dosage: 80 MG, 1X/DAY
     Route: 024
     Dates: start: 20180905, end: 20180909

REACTIONS (4)
  - Febrile bone marrow aplasia [Recovered/Resolved]
  - Mucosal inflammation [Recovered/Resolved]
  - Off label use [Unknown]
  - Product use issue [Unknown]

NARRATIVE: CASE EVENT DATE: 20180905
